FAERS Safety Report 12845303 (Version 1)
Quarter: 2016Q4

REPORT INFORMATION
  Report Type: Report from Study
  Country: US (occurrence: US)
  Receive Date: 20161013
  Receipt Date: 20161013
  Transmission Date: 20170207
  Serious: Yes (Other)
  Sender: FDA-Public Use
  Company Number: US-TEVA-537765USA

PATIENT
  Sex: Female
  Weight: 15.56 kg

DRUGS (10)
  1. NUVIGIL [Suspect]
     Active Substance: ARMODAFINIL
     Dosage: 375 MILLIGRAM DAILY;
     Route: 064
     Dates: start: 2014
  2. ADDERALL [Concomitant]
     Active Substance: AMPHETAMINE ASPARTATE\AMPHETAMINE SULFATE\DEXTROAMPHETAMINE SACCHARATE\DEXTROAMPHETAMINE SULFATE
     Indication: NARCOLEPSY
     Dosage: 150 MILLIGRAM DAILY;
     Dates: start: 200202, end: 201502
  3. METOPROLOL. [Concomitant]
     Active Substance: METOPROLOL
     Indication: HYPERTENSION
     Dosage: 250 MILLIGRAM DAILY;
     Dates: start: 201304, end: 201502
  4. METHYLDOPA. [Concomitant]
     Active Substance: METHYLDOPA
     Indication: BLOOD PRESSURE MEASUREMENT
     Dosage: 250 MILLIGRAM DAILY;
     Dates: start: 20150127
  5. NUVIGIL [Suspect]
     Active Substance: ARMODAFINIL
     Dosage: 500 MILLIGRAM DAILY;
     Route: 048
     Dates: start: 201401
  6. VOL-PLUS PRENATAL VITAMINS [Concomitant]
     Indication: PREGNANCY
     Dates: start: 20150203
  7. ZANTAC [Concomitant]
     Active Substance: RANITIDINE HYDROCHLORIDE
     Indication: DYSPEPSIA
     Dosage: 150 MILLIGRAM DAILY;
     Dates: start: 20150203
  8. NUVIGIL [Suspect]
     Active Substance: ARMODAFINIL
     Dosage: 250 MILLIGRAM DAILY;
     Route: 048
     Dates: start: 2014
  9. ATIVAN [Concomitant]
     Active Substance: LORAZEPAM
     Indication: ANXIETY
     Dates: start: 200803, end: 201502
  10. CELEXA [Concomitant]
     Active Substance: CITALOPRAM HYDROBROMIDE
     Indication: DEPRESSION
     Dosage: 40 MILLIGRAM DAILY;
     Dates: start: 200804, end: 201502

REACTIONS (2)
  - Gross motor delay [Unknown]
  - Foetal exposure during pregnancy [Unknown]
